FAERS Safety Report 4942320-8 (Version None)
Quarter: 2006Q1

REPORT INFORMATION
  Report Type: 
  Country: None (occurrence: None)
  Receive Date: 20060313
  Receipt Date: 20051205
  Transmission Date: 20060701
  Serious: Yes (Other)
  Sender: FDA-Public Use
  Company Number: US-GLAXOSMITHKLINE-A0584612A

PATIENT
  Age: 24 Year
  Sex: Male

DRUGS (3)
  1. NICORETTE [Suspect]
     Dosage: 2MG SEE DOSAGE TEXT
  2. NICORETTE [Suspect]
     Dosage: 4MG SEE DOSAGE TEXT
  3. NICOTINE [Suspect]
     Dosage: 14MG SEE DOSAGE TEXT

REACTIONS (3)
  - DRUG ABUSER [None]
  - GINGIVAL BLEEDING [None]
  - GINGIVAL RECESSION [None]
